FAERS Safety Report 12406500 (Version 1)
Quarter: 2016Q2

REPORT INFORMATION
  Report Type: Spontaneous
  Country: US (occurrence: None)
  Receive Date: 20160525
  Receipt Date: 20160525
  Transmission Date: 20160815
  Serious: Yes (Hospitalization)
  Sender: FDA-Public Use
  Company Number: None

PATIENT
  Age: 54 Year
  Sex: Female
  Weight: 101 kg

DRUGS (1)
  1. IFOSFAMIDE, 2000 MG/M2 LIQUID FORMULATION [Suspect]
     Active Substance: IFOSFAMIDE
     Indication: SARCOMA
     Route: 041
     Dates: start: 20160507, end: 20160508

REACTIONS (1)
  - Encephalopathy [None]

NARRATIVE: CASE EVENT DATE: 20160507
